FAERS Safety Report 6464638-2 (Version None)
Quarter: 2009Q4

REPORT INFORMATION
  Report Type: 
  Country: None (occurrence: None)
  Receive Date: 20091124
  Receipt Date: 20091117
  Transmission Date: 20100525
  Serious: Yes (Hospitalization)
  Sender: FDA-Public Use
  Company Number: SPV1-2009-02320

PATIENT
  Age: 34 Year
  Sex: Male

DRUGS (1)
  1. ELAPRASE [Suspect]
     Indication: MUCOPOLYSACCHARIDOSIS II
     Dosage: 4 DF, 1X/WEEK, IV DRIP
     Route: 041
     Dates: start: 20070215

REACTIONS (4)
  - DYSPNOEA [None]
  - H1N1 INFLUENZA [None]
  - OROPHARYNGEAL PAIN [None]
  - PNEUMONIA [None]
